FAERS Safety Report 10904208 (Version 1)
Quarter: 2015Q1

REPORT INFORMATION
  Report Type: Report from Study
  Country: CA (occurrence: CA)
  Receive Date: 20150311
  Receipt Date: 20150311
  Transmission Date: 20150721
  Serious: Yes (Hospitalization)
  Sender: FDA-Public Use
  Company Number: CA-SHIRE-CA201501828

PATIENT
  Age: 15 Year
  Sex: Male

DRUGS (5)
  1. IDURSULFASE [Suspect]
     Active Substance: IDURSULFASE
     Indication: MUCOPOLYSACCHARIDOSIS II
     Dosage: 0.45 MG/KG (ALTERNATING 0.67 MG/KG), 1X/WEEK
     Route: 041
     Dates: start: 20101006
  2. IDURSULFASE [Suspect]
     Active Substance: IDURSULFASE
     Dosage: 0.45 MG/KG, (0.67 MG/KG) OTHER (2 VIALS X 3 WEEKS THEN 3 VIALS)
     Route: 041
     Dates: start: 20100929
  3. IDURSULFASE [Suspect]
     Active Substance: IDURSULFASE
     Dosage: 0.5 MG/KG, 1X/WEEK
     Route: 041
     Dates: start: 20090311
  4. IDURSULFASE [Suspect]
     Active Substance: IDURSULFASE
     Dosage: 0.67 MG/KG (ALTERNATING 0.45 MG/KG), OTHER
     Route: 041
     Dates: start: 20101006
  5. IDURSULFASE [Suspect]
     Active Substance: IDURSULFASE
     Dosage: UNK, 1X/WEEK
     Route: 041
     Dates: start: 20080403

REACTIONS (1)
  - Carpal tunnel syndrome [Unknown]
